FAERS Safety Report 6739587-2 (Version None)
Quarter: 2010Q2

REPORT INFORMATION
  Report Type: 
  Country: None (occurrence: None)
  Receive Date: 20100525
  Receipt Date: 20100517
  Transmission Date: 20101027
  Serious: Yes (Disabling)
  Sender: FDA-Public Use
  Company Number: FR-ROCHE-569703

PATIENT
  Sex: Female

DRUGS (17)
  1. HERCEPTIN [Suspect]
     Indication: BREAST CANCER
     Dosage: FORM INJECTABLE SOLUTION
     Route: 042
     Dates: start: 20061031
  2. HERCEPTIN [Suspect]
     Route: 042
     Dates: start: 20070222, end: 20070405
  3. HERCEPTIN [Suspect]
     Route: 042
     Dates: start: 20080215, end: 20080815
  4. TAXOTERE [Suspect]
     Indication: BREAST CANCER
     Route: 042
     Dates: start: 20061031
  5. TAXOTERE [Suspect]
     Dosage: FORM INJECTABLE SOLUTION
     Route: 042
     Dates: start: 20070222, end: 20070405
  6. TAXOTERE [Suspect]
     Route: 042
     Dates: start: 20080215, end: 20080415
  7. ENDOXAN [Suspect]
     Indication: BREAST CANCER
     Route: 042
     Dates: start: 20061031
  8. ENDOXAN [Suspect]
     Dosage: FORM INJECTABLE SOLUTION, RECD 3 CYCLES
     Route: 042
     Dates: start: 20061221, end: 20070201
  9. ENDOXAN [Suspect]
     Route: 042
     Dates: start: 20071215, end: 20080215
  10. FARMORUBICINE [Suspect]
     Indication: BREAST CANCER
     Route: 042
     Dates: start: 20061031
  11. FARMORUBICINE [Suspect]
     Dosage: FORM INJECTABLE SOLUTION, RECD 3 CYCLES
     Route: 042
     Dates: start: 20061221, end: 20070201
  12. FARMORUBICINE [Suspect]
     Route: 042
     Dates: start: 20071215, end: 20080215
  13. FLUOROURACIL [Suspect]
     Indication: BREAST CANCER
     Dosage: FORM INJECTABLE SOLUTION
     Route: 042
     Dates: start: 20061031
  14. FLUOROURACIL [Suspect]
     Dosage: RECD 3 CYCLES
     Route: 042
     Dates: start: 20061221, end: 20070201
  15. FLUOROURACIL [Suspect]
     Route: 042
     Dates: start: 20071215, end: 20080215
  16. LEVOTHYROXINE SODIUM [Concomitant]
     Indication: HYPOTHYROIDISM
     Route: 048
  17. FEMARA [Concomitant]
     Indication: BREAST CANCER
     Route: 048
     Dates: start: 20070901

REACTIONS (1)
  - ALOPECIA [None]
